FAERS Safety Report 8067719-5 (Version None)
Quarter: 2012Q1

REPORT INFORMATION
  Report Type: 
  Country: None (occurrence: None)
  Receive Date: 20120124
  Receipt Date: 20120120
  Transmission Date: 20120608
  Serious: Yes (Other)
  Sender: FDA-Public Use
  Company Number: US-PFIZER INC-2012004952

PATIENT
  Sex: Female
  Weight: 125 kg

DRUGS (11)
  1. TRAZODONE [Concomitant]
     Indication: AFFECTIVE DISORDER
     Dosage: 300 MG, 1X/DAY AT NIGHT
  2. KLONOPIN [Concomitant]
     Indication: ANXIOLYTIC THERAPY
     Dosage: 1MG IN MORNING AND 2MG AT NIGHT
  3. CELEXA [Concomitant]
     Indication: ANTIDEPRESSANT THERAPY
     Dosage: 40 MG, UNK
  4. TRAZODONE [Concomitant]
     Indication: SLEEP DISORDER
  5. BENADRYL [Concomitant]
     Indication: SLEEP DISORDER
     Dosage: 100 MG, 1X/DAY AT NIGHT
  6. CHANTIX [Suspect]
     Indication: SMOKING CESSATION THERAPY
     Dosage: 0.5 MG, 1X/DAY
     Route: 048
     Dates: start: 20110101, end: 20110101
  7. NEURONTIN [Concomitant]
     Indication: SPINAL OSTEOARTHRITIS
     Dosage: UNK
  8. CHANTIX [Suspect]
     Dosage: UNK
     Dates: start: 20120101
  9. OMEPRAZOLE [Concomitant]
     Dosage: UNK
  10. VICODIN [Concomitant]
     Dosage: 750 MG
  11. CHANTIX [Suspect]
     Dosage: 0.5 MG, DAILY
     Route: 048
     Dates: start: 20120106, end: 20120101

REACTIONS (7)
  - DYSPNOEA [None]
  - COUGH [None]
  - FEELING ABNORMAL [None]
  - ANXIETY [None]
  - CHEST DISCOMFORT [None]
  - DIZZINESS [None]
  - NERVOUSNESS [None]
